FAERS Safety Report 15469562 (Version 1)
Quarter: 2018Q4

REPORT INFORMATION
  Report Type: Spontaneous
  Country: IE (occurrence: IE)
  Receive Date: 20181005
  Receipt Date: 20181005
  Transmission Date: 20190205
  Serious: Yes (Disabling)
  Sender: FDA-Public Use
  Company Number: IE-PFIZER INC-2018394404

PATIENT
  Age: 37 Year
  Sex: Male

DRUGS (8)
  1. SERTRALINE HCL [Suspect]
     Active Substance: SERTRALINE HYDROCHLORIDE
     Indication: DEPRESSION
     Dosage: 100 MG, UNK
     Dates: start: 20141104, end: 20180907
  2. QUETIAPINE. [Suspect]
     Active Substance: QUETIAPINE
     Indication: ANXIETY
     Dosage: 25 MG, DAILY (EVERY 24 HOURS)
     Route: 048
     Dates: start: 20141215, end: 20171215
  3. AMITRIPTYLINE [Concomitant]
     Active Substance: AMITRIPTYLINE
     Indication: IRRITABLE BOWEL SYNDROME
  4. MIRAP [MIRTAZAPINE] [Concomitant]
     Indication: ANXIETY
  5. SERTRALINE HCL [Suspect]
     Active Substance: SERTRALINE HYDROCHLORIDE
     Indication: ANXIETY
  6. QUETIAPINE. [Suspect]
     Active Substance: QUETIAPINE
     Indication: DEPRESSION
  7. AMITRIPTYLINE [Concomitant]
     Active Substance: AMITRIPTYLINE
     Indication: INSOMNIA
     Dosage: 25 MG, UNK
     Dates: start: 20010112, end: 20151125
  8. MIRAP [MIRTAZAPINE] [Concomitant]
     Indication: DEPRESSION
     Dosage: 37.5 MG, UNK
     Dates: start: 20170724, end: 20180907

REACTIONS (2)
  - Muscle twitching [Not Recovered/Not Resolved]
  - Tongue spasm [Not Recovered/Not Resolved]

NARRATIVE: CASE EVENT DATE: 20160107
